FAERS Safety Report 7145280-7 (Version None)
Quarter: 2010Q4

REPORT INFORMATION
  Report Type: 
  Country: None (occurrence: None)
  Receive Date: 20101208
  Receipt Date: 20101202
  Transmission Date: 20110411
  Serious: Yes (Hospitalization)
  Sender: FDA-Public Use
  Company Number: US-ELI_LILLY_AND_COMPANY-US201010005480

PATIENT
  Sex: Male
  Weight: 70.9 kg

DRUGS (18)
  1. CETUXIMAB [Suspect]
     Indication: NON-SMALL CELL LUNG CANCER
     Dosage: 450 MG, OTHER
     Route: 042
     Dates: start: 20100831, end: 20100921
  2. PEMETREXED [Suspect]
     Indication: NON-SMALL CELL LUNG CANCER
     Dosage: 890 MG, OTHER
     Route: 042
     Dates: start: 20100831, end: 20100921
  3. CARBOPLATIN [Suspect]
     Indication: NON-SMALL CELL LUNG CANCER
     Dosage: 620 MG, OTHER
     Dates: start: 20100831, end: 20100921
  4. FOLIC ACID [Concomitant]
     Dosage: 1 MG, DAILY (1/D)
     Route: 048
  5. DOCUSATE [Concomitant]
     Dosage: 100 MG, 2/D
     Route: 048
  6. PREGABALIN [Concomitant]
     Dosage: 150 MG, 3/D
     Route: 048
  7. TAMSULOSIN [Concomitant]
     Dosage: 0.4 MG, EACH EVENING
     Route: 048
  8. FINASTERIDE [Concomitant]
     Dosage: 5 MG, DAILY (1/D)
     Route: 048
  9. FENTANYL [Concomitant]
  10. VANCOMYCIN [Concomitant]
  11. PREDNISONE [Concomitant]
  12. CLOTRIMAZOLE [Concomitant]
  13. HYDROMORPHONE HCL [Concomitant]
  14. HYDROCODONE BITARTRATE AND ACETAMINOPHEN [Concomitant]
  15. DIPHENHYDRAMINE HCL [Concomitant]
  16. HYDROXYZINE [Concomitant]
  17. ACETAMINOPHEN [Concomitant]
  18. VITAMIN B-12 [Concomitant]
     Dosage: 1000 UG, UNK
     Route: 030
     Dates: start: 20100826

REACTIONS (4)
  - CELLULITIS [None]
  - DEHYDRATION [None]
  - FUNGAEMIA [None]
  - VASCULITIS [None]
